FAERS Safety Report 23823389 (Version 1)
Quarter: 2024Q2

REPORT INFORMATION
  Report Type: Spontaneous
  Country: CN (occurrence: CN)
  Receive Date: 20240507
  Receipt Date: 20240507
  Transmission Date: 20240715
  Serious: Yes (Hospitalization, Other)
  Sender: FDA-Public Use
  Company Number: CN-NOVAST LABORATORIES INC.-2024NOV000230

PATIENT

DRUGS (1)
  1. METOPROLOL SUCCINATE [Suspect]
     Active Substance: METOPROLOL SUCCINATE
     Indication: Coronary artery disease
     Dosage: 25 MILLIGRAM PER DAY
     Route: 048
     Dates: start: 20160320

REACTIONS (2)
  - Liver injury [Unknown]
  - Off label use [Unknown]

NARRATIVE: CASE EVENT DATE: 20160320
